FAERS Safety Report 19047110 (Version 2)
Quarter: 2021Q1

REPORT INFORMATION
  Report Type: Other
  Country: GB (occurrence: GB)
  Receive Date: 20210323
  Receipt Date: 20210331
  Transmission Date: 20210420
  Serious: Yes (Life-Threatening, Hospitalization, Disabling, Other)
  Sender: FDA-Public Use
  Company Number: GB-GLENMARK PHARMACEUTICALS-2021GMK052836

PATIENT

DRUGS (1)
  1. MONTELUKAST SODIUM. [Suspect]
     Active Substance: MONTELUKAST SODIUM
     Indication: NASAL POLYPS
     Dosage: 10 MILLIGRAM
     Route: 048
     Dates: start: 2012, end: 2019

REACTIONS (4)
  - Tic [Not Recovered/Not Resolved]
  - Depression [Not Recovered/Not Resolved]
  - Suicidal behaviour [Not Recovered/Not Resolved]
  - Anxiety [Not Recovered/Not Resolved]
